FAERS Safety Report 21658624 (Version 1)
Quarter: 2022Q4

REPORT INFORMATION
  Report Type: Spontaneous
  Country: CN (occurrence: CN)
  Receive Date: 20221129
  Receipt Date: 20221129
  Transmission Date: 20230113
  Serious: Yes (Other)
  Sender: FDA-Public Use
  Company Number: CN-PFIZER INC-PV202200111801

PATIENT
  Age: 26 Year
  Sex: Female
  Weight: 50 kg

DRUGS (2)
  1. CYTARABINE [Suspect]
     Active Substance: CYTARABINE
     Indication: Acute promyelocytic leukaemia
     Dosage: 100 MG, 1X/DAY
     Route: 041
     Dates: start: 20221117, end: 20221118
  2. PIRARUBICIN HYDROCHLORIDE [Suspect]
     Active Substance: PIRARUBICIN HYDROCHLORIDE
     Indication: Acute promyelocytic leukaemia
     Dosage: 40 MG, 1X/DAY
     Route: 041
     Dates: start: 20221117, end: 20221118

REACTIONS (2)
  - Gastrooesophageal reflux disease [Recovered/Resolved]
  - Nausea [Recovered/Resolved]

NARRATIVE: CASE EVENT DATE: 20221117
